FAERS Safety Report 10348094 (Version 3)
Quarter: 2014Q4

REPORT INFORMATION
  Report Type: Spontaneous
  Country: GB (occurrence: GB)
  Receive Date: 20140729
  Receipt Date: 20141124
  Transmission Date: 20150528
  Serious: Yes (Disabling)
  Sender: FDA-Public Use
  Company Number: PHHY2014GB089659

PATIENT
  Age: 72 Year
  Sex: Female
  Weight: 93.7 kg

DRUGS (22)
  1. MEROPENEM. [Suspect]
     Active Substance: MEROPENEM
     Dosage: 1000 MG
     Route: 042
     Dates: start: 20110216, end: 20110217
  2. COLOMYCIN [Suspect]
     Active Substance: COLISTIN
     Indication: BACTERIAL DISEASE CARRIER
     Dosage: 12 MU
     Route: 042
     Dates: start: 201102, end: 20110217
  3. AZITHROMYCIN [Concomitant]
     Active Substance: AZITHROMYCIN ANHYDROUS
     Indication: PRODUCT USED FOR UNKNOWN INDICATION
     Dosage: 250 MG, QD
     Route: 048
  4. CARBOCISTEINE [Concomitant]
     Active Substance: CARBOCYSTEINE
     Indication: PRODUCT USED FOR UNKNOWN INDICATION
     Dosage: 750 MG, TID
     Route: 048
  5. CHLORPHENAMINE [Concomitant]
     Active Substance: CHLORPHENIRAMINE MALEATE
     Indication: ERYTHEMA
     Route: 065
  6. CLOTRIMAZOLE. [Concomitant]
     Active Substance: CLOTRIMAZOLE
     Indication: CANDIDA INFECTION
     Route: 065
  7. MONTELUKAST [Concomitant]
     Active Substance: MONTELUKAST SODIUM
     Indication: PRODUCT USED FOR UNKNOWN INDICATION
     Dosage: 10 MG, QD
     Route: 048
  8. SALBUTAMOL [Concomitant]
     Active Substance: ALBUTEROL
     Dosage: 100 UG, UNK
     Route: 055
  9. SALBUTAMOL [Concomitant]
     Active Substance: ALBUTEROL
     Dosage: 10 MG
     Route: 055
  10. TIOTROPIUM [Concomitant]
     Active Substance: TIOTROPIUM
     Indication: PRODUCT USED FOR UNKNOWN INDICATION
     Dosage: 18 MCG
     Route: 055
  11. CHLORPHENAMINE [Concomitant]
     Active Substance: CHLORPHENIRAMINE MALEATE
     Indication: PRURITUS
     Dosage: 4 MG, QID
     Route: 048
  12. FUROSEMIDE. [Concomitant]
     Active Substance: FUROSEMIDE
     Indication: PRODUCT USED FOR UNKNOWN INDICATION
     Dosage: 20 MG, QD
     Route: 048
  13. HEPARIN SODIUM. [Concomitant]
     Active Substance: HEPARIN SODIUM
     Indication: PRODUCT USED FOR UNKNOWN INDICATION
     Dosage: 50 U, UNK
  14. SALBUTAMOL [Concomitant]
     Active Substance: ALBUTEROL
     Indication: WHEEZING
     Dosage: 2.5 MG, QID
     Route: 055
  15. COLOMYCIN [Suspect]
     Active Substance: COLISTIN
     Indication: BRONCHIECTASIS
     Dosage: 6 MU
     Route: 042
     Dates: start: 20110205, end: 201102
  16. SERETIDE [Concomitant]
     Active Substance: FLUTICASONE FUROATE\SALMETEROL XINAFOATE
     Indication: PRODUCT USED FOR UNKNOWN INDICATION
     Dosage: 4 DF
     Route: 055
  17. MEROPENEM. [Suspect]
     Active Substance: MEROPENEM
     Dosage: 6000 MG
     Route: 042
     Dates: end: 20110215
  18. PREDNISOLONE. [Concomitant]
     Active Substance: PREDNISOLONE
     Indication: PRODUCT USED FOR UNKNOWN INDICATION
     Dosage: 30 MG, QD
     Route: 048
  19. ADCAL-D3 [Concomitant]
     Active Substance: CALCIUM CARBONATE\CHOLECALCIFEROL
     Indication: PRODUCT USED FOR UNKNOWN INDICATION
     Dosage: 2 DF, QD
     Route: 048
  20. MEROPENEM. [Suspect]
     Active Substance: MEROPENEM
     Indication: PRODUCT USED FOR UNKNOWN INDICATION
     Dosage: 1000 MG, UNK
     Route: 042
     Dates: start: 20110216, end: 20110217
  21. ALENDRONATE [Concomitant]
     Active Substance: ALENDRONATE SODIUM
     Indication: PRODUCT USED FOR UNKNOWN INDICATION
     Dosage: 70 MG, UNK
     Route: 048
  22. IPRATROPIUM [Concomitant]
     Active Substance: IPRATROPIUM
     Indication: PRODUCT USED FOR UNKNOWN INDICATION
     Dosage: 500 UG, QID
     Route: 055

REACTIONS (13)
  - Fall [Not Recovered/Not Resolved]
  - Rash [Unknown]
  - Burning sensation [Unknown]
  - Headache [Recovered/Resolved]
  - Off label use [Recovered/Resolved]
  - Dizziness [Unknown]
  - Nausea [Unknown]
  - Constipation [Unknown]
  - Weight increased [Not Recovered/Not Resolved]
  - Decreased appetite [Unknown]
  - Secretion discharge [Unknown]
  - Prescribed overdose [Recovered/Resolved]
  - Balance disorder [Not Recovered/Not Resolved]

NARRATIVE: CASE EVENT DATE: 201102
